FAERS Safety Report 8530452-7 (Version None)
Quarter: 2012Q3

REPORT INFORMATION
  Report Type: 
  Country: None (occurrence: None)
  Receive Date: 20120723
  Receipt Date: 20120711
  Transmission Date: 20120928
  Serious: Yes (Other)
  Sender: FDA-Public Use
  Company Number: JP-VERTEX PHARMACEUTICALS INC.-AE-2012-004360

PATIENT
  Age: 65 Year
  Sex: Female

DRUGS (17)
  1. PEG-INTRON [Concomitant]
     Route: 058
     Dates: end: 20120516
  2. URSO 250 [Concomitant]
     Route: 048
  3. PEG-INTRON [Concomitant]
     Route: 058
     Dates: start: 20120329, end: 20120329
  4. PEG-INTRON [Concomitant]
     Route: 058
     Dates: start: 20120405
  5. PEG-INTRON [Concomitant]
     Route: 058
     Dates: start: 20120606
  6. REBETOL [Concomitant]
     Indication: HEPATITIS C
     Route: 048
     Dates: start: 20120315, end: 20120321
  7. REBETOL [Concomitant]
     Route: 048
     Dates: start: 20120329, end: 20120424
  8. LANSOPRAZOLE [Concomitant]
     Route: 048
     Dates: start: 20120319
  9. PEG-INTRON [Concomitant]
     Route: 058
     Dates: start: 20120530, end: 20120530
  10. TELAVIC (TELAPREVIR) [Suspect]
     Indication: HEPATITIS C
     Route: 048
     Dates: start: 20120315, end: 20120321
  11. REBETOL [Concomitant]
     Route: 048
     Dates: start: 20120425, end: 20120606
  12. REBETOL [Concomitant]
     Route: 048
     Dates: start: 20120606
  13. PRIMPERAN TAB [Concomitant]
     Route: 048
     Dates: start: 20120319
  14. PRIMPERAN TAB [Concomitant]
     Route: 048
     Dates: end: 20120502
  15. TELAVIC (TELAPREVIR) [Suspect]
     Route: 048
     Dates: start: 20120329
  16. PEG-INTRON [Concomitant]
     Indication: HEPATITIS C
     Route: 058
     Dates: start: 20120315, end: 20120315
  17. PROMACTA [Concomitant]
     Route: 048
     Dates: start: 20120509

REACTIONS (3)
  - PLATELET COUNT DECREASED [None]
  - WHITE BLOOD CELL COUNT DECREASED [None]
  - NEUTROPHIL COUNT DECREASED [None]
